FAERS Safety Report 7450572-8 (Version None)
Quarter: 2011Q2

REPORT INFORMATION
  Report Type: 
  Country: None (occurrence: None)
  Receive Date: 20110422
  Receipt Date: 20110408
  Transmission Date: 20111010
  Serious: Yes (Other)
  Sender: FDA-Public Use
  Company Number: 029204

PATIENT
  Sex: Female

DRUGS (4)
  1. ANTEBATE [Concomitant]
  2. POLARAMINE /00043702/ [Concomitant]
  3. TAMIFLU /01400102/ [Concomitant]
  4. XYZAL [Suspect]
     Indication: ECZEMA
     Dosage: (5 MG QD ORAL)
     Route: 048
     Dates: start: 20110302, end: 20110307

REACTIONS (7)
  - BLISTER [None]
  - OEDEMA PERIPHERAL [None]
  - NEUROPATHY PERIPHERAL [None]
  - ERYTHEMA MULTIFORME [None]
  - HYPOAESTHESIA [None]
  - SKIN EXFOLIATION [None]
  - HERPES SIMPLEX [None]
